FAERS Safety Report 5029030-6 (Version None)
Quarter: 2006Q2

REPORT INFORMATION
  Report Type: 
  Country: None (occurrence: None)
  Receive Date: 20060613
  Receipt Date: 20060530
  Transmission Date: 20061013
  Serious: Yes (Death)
  Sender: FDA-Public Use
  Company Number: 2006RR-02468

PATIENT
  Age: 69 Year
  Sex: Female

DRUGS (9)
  1. ROSUVASTATIN (ROSUVASTATIN) [Suspect]
     Indication: HYPERLIPIDAEMIA
     Dosage: 10 MG, ORAL
     Route: 048
     Dates: start: 20040101
  2. EZETIMIBE (EZETIMIBE) [Suspect]
     Indication: HYPERLIPIDAEMIA
     Dosage: 10 MG, ORAL
     Route: 048
     Dates: start: 20040101
  3. IBUPROFEN [Suspect]
     Indication: OSTEOARTHRITIS
     Dosage: 400 MG, BID, ORAL
     Route: 048
     Dates: start: 20060405
  4. ALITIZIDE-SPIRONOLACTONE (ALTIZIDE, SPIRONOLACTONE) [Suspect]
     Indication: HYPERTENSION
     Dosage: 25 MG, QD, ORAL
     Route: 048
     Dates: start: 20051201
  5. LOSARTAN+HYDROCHLOROTHIAZIDE (HYDROCHLOROTHIAZIDE, LOSARTAN POTASSIUM) [Suspect]
     Indication: DIABETES MELLITUS
     Dosage: 1, QD, ORAL
     Route: 048
     Dates: start: 20040101
  6. METFORMIN HCL [Suspect]
     Indication: DIABETES MELLITUS
     Dosage: 850 MG, BID, ORAL
     Route: 048
     Dates: start: 20040101
  7. ROSIGLITAZONE [Suspect]
     Indication: DIABETES MELLITUS
     Dosage: 15 MG, QD, ORAL
     Route: 048
     Dates: start: 20040101
  8. BISOPROLOL TABLET 10MG (BISOPROLOL FUMARATE) TABLET, 10MG [Suspect]
     Dosage: 10 MG, QD, ORAL
     Route: 048
  9. ASPIRIN [Suspect]
     Indication: CARDIOVASCULAR DISORDER
     Dosage: 75 MG, QD, ORAL
     Route: 048
     Dates: start: 20040101

REACTIONS (2)
  - RENAL FAILURE ACUTE [None]
  - RHABDOMYOLYSIS [None]
